FAERS Safety Report 7441655-7 (Version None)
Quarter: 2011Q2

REPORT INFORMATION
  Report Type: 
  Country: None (occurrence: None)
  Receive Date: 20110420
  Receipt Date: 20110411
  Transmission Date: 20111010
  Serious: Yes (Hospitalization)
  Sender: FDA-Public Use
  Company Number: 2011SP015995

PATIENT
  Age: 65 Year
  Sex: Female

DRUGS (9)
  1. LEVOTHYROXINE SODIUM [Concomitant]
  2. OXAZEPAM [Suspect]
     Indication: PRODUCT USED FOR UNKNOWN INDICATION
     Dosage: 50 MG;TID;PO
     Route: 048
     Dates: end: 20101104
  3. MIRTAZAPINE [Suspect]
     Indication: PRODUCT USED FOR UNKNOWN INDICATION
     Dosage: 15 MG;QD;PO
     Route: 048
     Dates: start: 20100601, end: 20101104
  4. KETOPROFEN [Suspect]
     Indication: PAIN IN EXTREMITY
     Dosage: IM
     Route: 030
     Dates: start: 20101001, end: 20101001
  5. LYRICA [Suspect]
     Indication: PRODUCT USED FOR UNKNOWN INDICATION
     Dosage: 150 MG;QD;PO
     Route: 048
     Dates: end: 20101104
  6. GLUCOPHAGE [Suspect]
     Dosage: 1000 MG;TID;PO
     Route: 048
     Dates: end: 20101104
  7. LITHIUM CARBONATE [Suspect]
     Indication: PRODUCT USED FOR UNKNOWN INDICATION
     Dosage: 250 MG;TID;PO
     Route: 048
     Dates: start: 20100601, end: 20101104
  8. SOLIAN (AMISULPRIDE) [Suspect]
     Indication: PRODUCT USED FOR UNKNOWN INDICATION
     Dosage: 200 MG;QD;PO
     Route: 048
     Dates: end: 20101104
  9. LEPTICUR (TROPATEPINE HYDROCHLORIDE) [Suspect]
     Indication: PRODUCT USED FOR UNKNOWN INDICATION
     Dosage: 10 MG;QD;PO
     Route: 048
     Dates: end: 20101104

REACTIONS (18)
  - FACE OEDEMA [None]
  - RENAL FAILURE ACUTE [None]
  - OEDEMA PERIPHERAL [None]
  - NORMOCHROMIC NORMOCYTIC ANAEMIA [None]
  - IRON DEFICIENCY ANAEMIA [None]
  - HYPOTENSION [None]
  - DEHYDRATION [None]
  - HYPERKALAEMIA [None]
  - DIARRHOEA HAEMORRHAGIC [None]
  - LEUKOCYTOSIS [None]
  - CULTURE URINE POSITIVE [None]
  - HYPOPERFUSION [None]
  - DIARRHOEA [None]
  - TREMOR [None]
  - RENAL TUBULAR NECROSIS [None]
  - GENERAL PHYSICAL HEALTH DETERIORATION [None]
  - METABOLIC ACIDOSIS [None]
  - PYREXIA [None]
